FAERS Safety Report 25963809 (Version 1)
Quarter: 2025Q4

REPORT INFORMATION
  Report Type: Spontaneous
  Country: US (occurrence: None)
  Receive Date: 20251027
  Receipt Date: 20251027
  Transmission Date: 20260117
  Serious: Yes (Life-Threatening, Hospitalization, Disabling)
  Sender: FDA-CTU
  Company Number: None

PATIENT
  Age: 76 Year
  Sex: Male
  Weight: 95.25 kg

DRUGS (18)
  1. ERLEADA [Suspect]
     Active Substance: APALUTAMIDE
     Indication: Prostate cancer metastatic
     Dosage: FREQUENCY : DAILY;?
     Route: 048
     Dates: start: 20250908, end: 20250922
  2. ERLEADA [Suspect]
     Active Substance: APALUTAMIDE
     Indication: Adjuvant therapy
  3. Salvestrol Platinum [Concomitant]
  4. VITAMIN D3 [Concomitant]
     Active Substance: CHOLECALCIFEROL
  5. CALCIUM [Concomitant]
     Active Substance: CALCIUM
  6. IRON [Concomitant]
     Active Substance: IRON
  7. ALPHA LIPOIC ACID [Concomitant]
     Active Substance: .ALPHA.-LIPOIC ACID
  8. MAGNESIUM GLYCINATE [Concomitant]
     Active Substance: MAGNESIUM GLYCINATE
  9. ASPIRIN [Concomitant]
     Active Substance: ASPIRIN
  10. Budesonide 3mg - l/day [Concomitant]
  11. Carvedilol 3.125 mg-2/day [Concomitant]
  12. Furosemide 20 mg I/day [Concomitant]
  13. Lexapro 10 mg - I/day [Concomitant]
  14. Lisinopril 20 mg - I/day [Concomitant]
  15. Spironolactone 12.5 mg - 1/day [Concomitant]
  16. Allopurinol 100 mg - I/day [Concomitant]
  17. Lipitor 20 mg - I/day [Concomitant]
  18. Famotidine 40 mg - I/day [Concomitant]

REACTIONS (14)
  - Bone pain [None]
  - Arthralgia [None]
  - Muscular weakness [None]
  - Pain [None]
  - Dysstasia [None]
  - Gait inability [None]
  - Hypercalcaemia [None]
  - Hallucination [None]
  - Anxiety [None]
  - Panic attack [None]
  - Fluid retention [None]
  - Renal impairment [None]
  - Failure to thrive [None]
  - Skin disorder [None]

NARRATIVE: CASE EVENT DATE: 20250919
